FAERS Safety Report 7307168-8 (Version None)
Quarter: 2011Q1

REPORT INFORMATION
  Report Type: 
  Country: None (occurrence: None)
  Receive Date: 20110223
  Receipt Date: 20110210
  Transmission Date: 20110831
  Serious: Yes (Other)
  Sender: FDA-Public Use
  Company Number: FR-CELGENEUS-056-C5013-11021443

PATIENT
  Sex: Female
  Weight: 70 kg

DRUGS (5)
  1. DEXAMETHASONE [Suspect]
     Route: 065
     Dates: start: 20100123
  2. DEXAMETHASONE [Suspect]
     Indication: MULTIPLE MYELOMA
     Route: 065
     Dates: start: 20081025
  3. ANTICOAGULANTS [Concomitant]
     Route: 065
  4. CC-5013 [Suspect]
     Indication: MULTIPLE MYELOMA
     Route: 048
     Dates: start: 20081025
  5. CC-5013 [Suspect]
     Route: 048
     Dates: start: 20100123

REACTIONS (1)
  - SQUAMOUS CELL CARCINOMA [None]
